FAERS Safety Report 9555427 (Version 2)
Quarter: 2013Q4

REPORT INFORMATION
  Report Type: Spontaneous
  Country: US (occurrence: None)
  Receive Date: 20130724
  Receipt Date: 20131226
  Transmission Date: 20140711
  Serious: Yes (Other)
  Sender: FDA-Public Use
  Company Number: PHEH2013US008861

PATIENT
  Age: 45 Year
  Sex: Female
  Weight: 100.2 kg

DRUGS (6)
  1. GILENYA [Suspect]
     Indication: RELAPSING-REMITTING MULTIPLE SCLEROSIS
     Route: 048
     Dates: start: 20130114, end: 20130419
  2. NEURONTIN (GABAPENTIN) [Concomitant]
  3. EFFEXOR (VENLAFAXINE HYDROCHLORIDE) [Concomitant]
  4. BUSPAR (BUSPIRONE HYDROCHLORIDE) [Concomitant]
  5. DEXILANT (DEXLANSOPRAZOLE) [Concomitant]
  6. PROVIGIL (MODAFINIL) [Concomitant]

REACTIONS (5)
  - Lymphocyte count decreased [None]
  - Aspartate aminotransferase increased [None]
  - Alanine aminotransferase increased [None]
  - Upper respiratory tract infection [None]
  - Neutrophil percentage increased [None]
